FAERS Safety Report 13663008 (Version 2)
Quarter: 2017Q3

REPORT INFORMATION
  Report Type: Spontaneous
  Country: US (occurrence: US)
  Receive Date: 20170619
  Receipt Date: 20170709
  Transmission Date: 20171127
  Serious: No
  Sender: FDA-Public Use
  Company Number: US-009507513-1706USA007186

PATIENT
  Age: 18 Year
  Sex: Female
  Weight: 69.84 kg

DRUGS (1)
  1. NEXPLANON [Suspect]
     Active Substance: ETONOGESTREL
     Dosage: 1 ROD EVERY 3 YEARS
     Route: 059
     Dates: start: 20170330, end: 20170515

REACTIONS (6)
  - Perforation [Unknown]
  - Dermatillomania [Unknown]
  - Implant site cellulitis [Recovered/Resolved]
  - Implant site erythema [Unknown]
  - Implant site induration [Unknown]
  - Implant site discharge [Unknown]

NARRATIVE: CASE EVENT DATE: 2017
